FAERS Safety Report 23160931 (Version 1)
Quarter: 2023Q4

REPORT INFORMATION
  Report Type: Spontaneous
  Country: US (occurrence: US)
  Receive Date: 20231108
  Receipt Date: 20231108
  Transmission Date: 20240110
  Serious: No
  Sender: FDA-Public Use
  Company Number: US-SA-SAC20231101000152

PATIENT
  Age: 42 Year
  Sex: Female

DRUGS (1)
  1. DUPIXENT [Suspect]
     Active Substance: DUPILUMAB
     Indication: Dermatitis atopic
     Dosage: 600 MG, 1X
     Route: 058

REACTIONS (6)
  - Ocular hyperaemia [Unknown]
  - Chest discomfort [Unknown]
  - Condition aggravated [Unknown]
  - Injection site swelling [Unknown]
  - Eye pruritus [Unknown]
  - Incorrect dose administered [Unknown]
